FAERS Safety Report 5155792-3 (Version None)
Quarter: 2006Q4

REPORT INFORMATION
  Report Type: 
  Country: None (occurrence: None)
  Receive Date: 20061114
  Receipt Date: 20061031
  Transmission Date: 20070319
  Serious: Yes (Other)
  Sender: FDA-Public Use
  Company Number: 2006136288

PATIENT
  Sex: Female
  Weight: 60.3284 kg

DRUGS (8)
  1. CHANTIX [Suspect]
     Indication: SMOKING CESSATION THERAPY
     Dates: start: 20060929
  2. PREDNISONE TAB [Suspect]
     Indication: LUNG INFECTION
     Dosage: ORAL
     Route: 048
     Dates: start: 20060101
  3. LEVAQUIN [Suspect]
     Indication: LUNG INFECTION
     Dates: start: 20060101
  4. LIPITOR [Concomitant]
  5. IPRATROPIUM BROMIDE [Concomitant]
  6. ALBUTEROL [Concomitant]
  7. SEREVENT [Concomitant]
  8. ADVAIR DISKUS 100/50 [Concomitant]

REACTIONS (5)
  - HUNGER [None]
  - INSOMNIA [None]
  - MOBILITY DECREASED [None]
  - TREMOR [None]
  - WEIGHT DECREASED [None]
